FAERS Safety Report 5677409-1 (Version None)
Quarter: 2008Q1

REPORT INFORMATION
  Report Type: 
  Country: None (occurrence: None)
  Receive Date: 20080318
  Receipt Date: 20080229
  Transmission Date: 20080703
  Serious: Yes (Other)
  Sender: FDA-Public Use
  Company Number: S08-FRA-00930-01

PATIENT
  Age: 62 Year
  Sex: Male

DRUGS (4)
  1. ESCITALOPRAM [Suspect]
     Dosage: 10 MG QD PO
     Route: 048
     Dates: start: 20071201, end: 20080101
  2. OMEPRAZOLE [Concomitant]
  3. AMARYL [Concomitant]
  4. BETA BLOCKING AGENTS [Concomitant]

REACTIONS (2)
  - LOSS OF CONSCIOUSNESS [None]
  - ROAD TRAFFIC ACCIDENT [None]
